FAERS Safety Report 8280341-0 (Version None)
Quarter: 2012Q2

REPORT INFORMATION
  Report Type: 
  Country: None (occurrence: None)
  Receive Date: 20120412
  Receipt Date: 20111020
  Transmission Date: 20120825
  Serious: No
  Sender: FDA-Public Use
  Company Number: US-ASTRAZENECA-2011SE64194

PATIENT
  Age: 50 Year
  Sex: Female

DRUGS (4)
  1. NEXIUM [Suspect]
     Route: 048
  2. SEROQUEL [Suspect]
     Route: 048
  3. NEXIUM [Suspect]
     Dosage: TWO NEXIUM PER DAY
     Route: 048
  4. SYNTHROID [Concomitant]

REACTIONS (6)
  - DRUG EFFECT DECREASED [None]
  - CHEST INJURY [None]
  - NAUSEA [None]
  - GASTRIC DISORDER [None]
  - GASTROOESOPHAGEAL REFLUX DISEASE [None]
  - DIARRHOEA [None]
